FAERS Safety Report 9516353 (Version 1)
Quarter: 2013Q1

REPORT INFORMATION
  Report Type: Spontaneous
  Country: US (occurrence: None)
  Receive Date: 20130305
  Receipt Date: 20130305
  Transmission Date: 20140127
  Serious: Yes (Hospitalization)
  Sender: FDA-Public Use
  Company Number: 163-21880-12081300

PATIENT
  Age: 60 Year
  Sex: Male

DRUGS (1)
  1. REVLIMID (LENALIDOMIDE) (25 MILLIGRAM, CAPSULES) [Suspect]
     Indication: MALIGNANT LYMPHOID NEOPLASM
     Dosage: 21 IN 21 D
     Route: 048
     Dates: start: 20120327, end: 20120722

REACTIONS (2)
  - White blood cell count decreased [None]
  - Pyrexia [None]
